FAERS Safety Report 13084428 (Version 1)
Quarter: 2017Q1

REPORT INFORMATION
  Report Type: Spontaneous
  Country: FR (occurrence: FR)
  Receive Date: 20170104
  Receipt Date: 20170104
  Transmission Date: 20170428
  Serious: Yes (Other)
  Sender: FDA-Public Use
  Company Number: FR-GALDERMA-FR16008894

PATIENT
  Age: 16 Year
  Sex: Male

DRUGS (3)
  1. EPIDUO [Suspect]
     Active Substance: ADAPALENE\BENZOYL PEROXIDE
     Dosage: 0.1% ADAPALENE /2.5% BENZOYL PEROXIDE
     Route: 061
     Dates: start: 20161215, end: 20161215
  2. DOXYCYCLINE. [Concomitant]
     Active Substance: DOXYCYCLINE
     Indication: PRODUCT USED FOR UNKNOWN INDICATION
     Route: 048
  3. EPIDUO [Suspect]
     Active Substance: ADAPALENE\BENZOYL PEROXIDE
     Indication: PRODUCT USED FOR UNKNOWN INDICATION
     Dosage: 0.1% ADAPALENE /2.5% BENZOYL PEROXIDE
     Route: 061
     Dates: start: 20161212, end: 20161212

REACTIONS (3)
  - Skin burning sensation [Unknown]
  - Angioedema [Unknown]
  - Eye swelling [Unknown]

NARRATIVE: CASE EVENT DATE: 20161226
